FAERS Safety Report 8493959-7 (Version None)
Quarter: 2012Q3

REPORT INFORMATION
  Report Type: 
  Country: None (occurrence: None)
  Receive Date: 20120709
  Receipt Date: 20120626
  Transmission Date: 20120928
  Serious: Yes (Hospitalization)
  Sender: FDA-Public Use
  Company Number: DE-AMGEN-DEUCT2012037933

PATIENT
  Age: 55 Year
  Sex: Female

DRUGS (6)
  1. METHOTREXATE [Concomitant]
     Dosage: 15 MG, WEEKLY
     Route: 048
     Dates: start: 20031201, end: 20110701
  2. IBUPROFEN [Concomitant]
     Dosage: 600 MG, UNK
     Dates: start: 20101001
  3. ISONIAZID [Concomitant]
     Dosage: 300 MG, UNK
     Dates: start: 20110101
  4. ETANERCEPT [Suspect]
     Indication: RHEUMATOID ARTHRITIS
     Dosage: 50 MG, UNK
     Dates: start: 20110301, end: 20110701
  5. METHYLPREDNISOLONE [Concomitant]
     Dosage: 4 MG, UNK
     Dates: start: 20110301
  6. METOHEXAL                          /00376902/ [Concomitant]
     Dosage: UNK
     Dates: start: 20100101

REACTIONS (1)
  - BURSITIS INFECTIVE STAPHYLOCOCCAL [None]
